FAERS Safety Report 5964342-0 (Version None)
Quarter: 2008Q4

REPORT INFORMATION
  Report Type: 
  Country: None (occurrence: None)
  Receive Date: 20081124
  Receipt Date: 20081112
  Transmission Date: 20090506
  Serious: Yes (Other)
  Sender: FDA-Public Use
  Company Number: NL-PFIZER INC-2008087308

PATIENT
  Age: 21 Year
  Sex: Female

DRUGS (2)
  1. SULFASALAZINE [Suspect]
     Indication: PAIN
  2. SULFASALAZINE [Suspect]
     Indication: JOINT DESTRUCTION

REACTIONS (1)
  - POLYNEUROPATHY [None]
